FAERS Safety Report 6935637-9 (Version None)
Quarter: 2010Q3

REPORT INFORMATION
  Report Type: 
  Country: None (occurrence: None)
  Receive Date: 20100823
  Receipt Date: 20100810
  Transmission Date: 20110219
  Serious: No
  Sender: FDA-Public Use
  Company Number: US-JNJFOC-20100803716

PATIENT
  Sex: Male
  Weight: 93.44 kg

DRUGS (3)
  1. FENTANYL CITRATE [Suspect]
     Indication: PRODUCT USED FOR UNKNOWN INDICATION
     Dosage: 100UG/HR+50UG/HR
     Route: 062
  2. FENTANYL CITRATE [Suspect]
     Indication: CERVICAL MYELOPATHY
     Dosage: 100UG/HR 50UG/HR AND NDC# 0781-7244-55
     Route: 062
  3. FENTANYL CITRATE [Suspect]
     Indication: BACK DISORDER
     Dosage: 100UG/HR 50UG/HR AND NDC# 0781-7244-55
     Route: 062

REACTIONS (2)
  - DRUG EFFECT DECREASED [None]
  - WRONG TECHNIQUE IN DRUG USAGE PROCESS [None]
